FAERS Safety Report 15285966 (Version 2)
Quarter: 2018Q3

REPORT INFORMATION
  Report Type: Spontaneous
  Country: RU (occurrence: RU)
  Receive Date: 20180816
  Receipt Date: 20180824
  Transmission Date: 20181010
  Serious: Yes (Hospitalization)
  Sender: FDA-Public Use
  Company Number: RU-009507513-1808RUS004872

PATIENT
  Age: 15 Year
  Sex: Female
  Weight: 61 kg

DRUGS (4)
  1. NASONEX [Suspect]
     Active Substance: MOMETASONE FUROATE
     Indication: VASOMOTOR RHINITIS
     Dosage: SINGLE DOSE 100MCG AND DAILY DOSE 200 MCG, INTRANASAL
     Route: 045
     Dates: start: 20120216, end: 20120305
  2. CALCIUM GLUCONATE. [Concomitant]
     Active Substance: CALCIUM GLUCONATE
     Indication: VASOMOTOR RHINITIS
     Dosage: UNK
     Route: 042
     Dates: start: 20120217, end: 20120302
  3. ZODAC [Suspect]
     Active Substance: CETIRIZINE HYDROCHLORIDE
     Indication: VASOMOTOR RHINITIS
     Dosage: IN A SINGLE DOSE AND DAILY DOSE 10MG
     Route: 048
     Dates: start: 20120216, end: 20120303
  4. ASCORUTIN [Suspect]
     Active Substance: ASCORBIC ACID\RUTIN
     Indication: SELF-MEDICATION
     Dosage: SINGLE DOSE 50+50 MG AND DAILY DOSE 150+150 MG, PER OS
     Route: 048
     Dates: start: 20120302, end: 20120303

REACTIONS (1)
  - Erythema [Recovering/Resolving]

NARRATIVE: CASE EVENT DATE: 20120303
